FAERS Safety Report 22102076 (Version 2)
Quarter: 2023Q1

REPORT INFORMATION
  Report Type: Spontaneous
  Country: US (occurrence: US)
  Receive Date: 20230316
  Receipt Date: 20230320
  Transmission Date: 20230418
  Serious: No
  Sender: FDA-Public Use
  Company Number: US-AMGEN-USASP2023046069

PATIENT
  Age: 70 Year
  Sex: Female

DRUGS (12)
  1. OTEZLA [Suspect]
     Active Substance: APREMILAST
     Indication: Psoriasis
     Dosage: 30 MILLIGRAM, BID
     Route: 048
     Dates: end: 2023
  2. BUMETANIDE [Concomitant]
     Active Substance: BUMETANIDE
     Dosage: 2 MILLIGRAM
  3. DILTIAZEM [Concomitant]
     Active Substance: DILTIAZEM
     Dosage: 120 MILLIGRAM
  4. DOCUSATE SOD [Concomitant]
     Dosage: 100 MILLIGRAM
  5. ALBUTEROL SULFATE\IPRATROPIUM BROMIDE [Concomitant]
     Active Substance: ALBUTEROL SULFATE\IPRATROPIUM BROMIDE
     Dosage: 0.5/3MG, 30X3ML
  6. OMEPRAZOLE SODIUM [Concomitant]
     Active Substance: OMEPRAZOLE SODIUM
     Dosage: 20 MILLIGRAM
  7. ONDANSETRON [Concomitant]
     Active Substance: ONDANSETRON
     Dosage: 4 MILLIGRAM
  8. PRADAXA [Concomitant]
     Active Substance: DABIGATRAN ETEXILATE MESYLATE
     Dosage: 150 MILLIGRAM
  9. SOTALOL [Concomitant]
     Active Substance: SOTALOL
     Dosage: 120 MILLIGRAM
  10. SPIRONOLACTONE [Concomitant]
     Active Substance: SPIRONOLACTONE
     Dosage: 25 MILLIGRAM
  11. SYMBICORT [Concomitant]
     Active Substance: BUDESONIDE\FORMOTEROL FUMARATE DIHYDRATE
     Dosage: 120
     Route: 048
  12. VENTOLIN HFA [Concomitant]
     Active Substance: ALBUTEROL SULFATE
     Dosage: INH W/DOS CTR 200PUFFS

REACTIONS (2)
  - Burning sensation [Recovered/Resolved]
  - Nausea [Recovered/Resolved]

NARRATIVE: CASE EVENT DATE: 20230101
